FAERS Safety Report 9931005 (Version 1)
Quarter: 2014Q1

REPORT INFORMATION
  Report Type: Report from Study
  Country: BR (occurrence: BR)
  Receive Date: 20140227
  Receipt Date: 20140227
  Transmission Date: 20141002
  Serious: Yes (Death, Hospitalization)
  Sender: FDA-Public Use
  Company Number: PHHY2014BR023451

PATIENT
  Sex: Female

DRUGS (2)
  1. EXELON PATCH [Suspect]
     Indication: DEMENTIA ALZHEIMER^S TYPE
     Dosage: 1 DF DAILY
     Route: 062
     Dates: start: 201308
  2. EXELON PATCH [Suspect]
     Indication: MEMORY IMPAIRMENT

REACTIONS (4)
  - Diabetic complication [Fatal]
  - Hyperglycaemia [Unknown]
  - Diet refusal [Unknown]
  - Blood pressure increased [Unknown]
